FAERS Safety Report 21128296 (Version 1)
Quarter: 2022Q3

REPORT INFORMATION
  Report Type: Spontaneous
  Country: IT (occurrence: IT)
  Receive Date: 20220725
  Receipt Date: 20220725
  Transmission Date: 20221027
  Serious: Yes (Other)
  Sender: FDA-Public Use
  Company Number: IT-DASHPHARMA-2022-IT-000123

PATIENT
  Age: 38 Year
  Sex: Male

DRUGS (1)
  1. TESTOSTERONE [Suspect]
     Active Substance: TESTOSTERONE
     Indication: Performance enhancing product use

REACTIONS (6)
  - Acute kidney injury [Unknown]
  - IgA nephropathy [Unknown]
  - Retinopathy [Unknown]
  - Visual field defect [Unknown]
  - Hypertension [Unknown]
  - Ventricular hypertrophy [Unknown]
